FAERS Safety Report 12688378 (Version 2)
Quarter: 2016Q3

REPORT INFORMATION
  Report Type: Report from Study
  Country: CN (occurrence: CN)
  Receive Date: 20160826
  Receipt Date: 20160828
  Transmission Date: 20161109
  Serious: Yes (Other)
  Sender: FDA-Public Use
  Company Number: CN-ROCHE-1818345

PATIENT

DRUGS (9)
  1. BEVACIZUMAB [Suspect]
     Active Substance: BEVACIZUMAB
     Indication: NON-SMALL CELL LUNG CANCER
     Route: 065
  2. CRIZOTINIB [Suspect]
     Active Substance: CRIZOTINIB
     Indication: NON-SMALL CELL LUNG CANCER
     Route: 065
  3. ERLOTINIB [Suspect]
     Active Substance: ERLOTINIB
     Indication: NON-SMALL CELL LUNG CANCER
     Route: 065
  4. DOCETAXEL. [Suspect]
     Active Substance: DOCETAXEL
     Indication: NON-SMALL CELL LUNG CANCER
     Route: 065
  5. PACLITAXEL. [Suspect]
     Active Substance: PACLITAXEL
     Indication: NON-SMALL CELL LUNG CANCER
     Route: 065
  6. PLATINUM [Suspect]
     Active Substance: PLATINUM
     Indication: NON-SMALL CELL LUNG CANCER
     Route: 065
  7. CARBOPLATIN. [Suspect]
     Active Substance: CARBOPLATIN
     Indication: NON-SMALL CELL LUNG CANCER
     Route: 065
  8. GEMCITABINE [Suspect]
     Active Substance: GEMCITABINE\GEMCITABINE HYDROCHLORIDE
     Indication: NON-SMALL CELL LUNG CANCER
     Route: 065
  9. PEMETREXED [Suspect]
     Active Substance: PEMETREXED
     Indication: NON-SMALL CELL LUNG CANCER
     Route: 065

REACTIONS (25)
  - Left ventricular dysfunction [Unknown]
  - Constipation [Unknown]
  - Hypokalaemia [Unknown]
  - Rhinitis [Unknown]
  - Pulmonary embolism [Unknown]
  - Thrombosis [Unknown]
  - Thrombocytopenia [Unknown]
  - Vomiting [Unknown]
  - Neutropenia [Unknown]
  - Proteinuria [Unknown]
  - Hypertension [Unknown]
  - Decreased appetite [Unknown]
  - Oedema [Unknown]
  - Neuropathy peripheral [Unknown]
  - Diarrhoea [Unknown]
  - Epistaxis [Unknown]
  - Anaemia [Unknown]
  - Fatigue [Unknown]
  - Leukopenia [Unknown]
  - Rash [Unknown]
  - Blood creatinine abnormal [Unknown]
  - Nephrotic syndrome [Unknown]
  - Nausea [Unknown]
  - Alanine aminotransferase abnormal [Unknown]
  - Hyponatraemia [Unknown]
